FAERS Safety Report 4771083-4 (Version None)
Quarter: 2005Q3

REPORT INFORMATION
  Report Type: 
  Country: None (occurrence: None)
  Receive Date: 20050914
  Receipt Date: 20050829
  Transmission Date: 20060218
  Serious: Yes (Hospitalization, Other)
  Sender: FDA-Public Use
  Company Number: USA0508106750

PATIENT
  Age: 58 Year
  Sex: Male
  Weight: 80 kg

DRUGS (2)
  1. HUMALOG [Suspect]
     Dosage: 15 U/2 DAY
  2. HUMULIN N [Suspect]
     Dosage: 20 U/2 DAY

REACTIONS (10)
  - ASTHENIA [None]
  - CEREBROVASCULAR ACCIDENT [None]
  - DEPRESSED MOOD [None]
  - DEVICE FAILURE [None]
  - DRUG DOSE OMISSION [None]
  - LOSS OF CONSCIOUSNESS [None]
  - MALAISE [None]
  - MYOCARDIAL INFARCTION [None]
  - PHARMACEUTICAL PRODUCT COMPLAINT [None]
  - TRIPLE VESSEL BYPASS GRAFT [None]
